FAERS Safety Report 14339789 (Version 5)
Quarter: 2018Q4

REPORT INFORMATION
  Report Type: Spontaneous
  Country: GB (occurrence: GB)
  Receive Date: 20171230
  Receipt Date: 20181129
  Transmission Date: 20190204
  Serious: Yes (Other)
  Sender: FDA-Public Use
  Company Number: GB-MYLANLABS-2017M1080363

PATIENT
  Age: 68 Year
  Sex: Male

DRUGS (1)
  1. TEMAZEPAM 10 MG TABLETS [Suspect]
     Active Substance: TEMAZEPAM
     Indication: INSOMNIA
     Dosage: 20 MG, HS
     Route: 048
     Dates: start: 201709

REACTIONS (33)
  - Claustrophobia [Recovered/Resolved]
  - Eating disorder [Recovered/Resolved]
  - Dissociation [Recovered/Resolved]
  - Decreased appetite [Recovered/Resolved]
  - Gastrointestinal motility disorder [Recovered/Resolved]
  - Dry skin [Recovered/Resolved]
  - Hyperhidrosis [Recovered/Resolved]
  - Unevaluable event [Recovered/Resolved]
  - Confusional state [Recovered/Resolved]
  - Paraesthesia [Recovered/Resolved]
  - Dizziness [Recovered/Resolved]
  - Prostatic disorder [Recovered/Resolved]
  - Photosensitivity reaction [Recovered/Resolved]
  - Micturition disorder [Recovered/Resolved]
  - Headache [Recovered/Resolved]
  - Thinking abnormal [Recovered/Resolved]
  - Nervousness [Recovered/Resolved]
  - Disturbance in attention [Recovered/Resolved]
  - Drug ineffective [Recovered/Resolved]
  - Neck pain [Recovered/Resolved]
  - Withdrawal syndrome [Recovered/Resolved]
  - Condition aggravated [Recovered/Resolved]
  - Dependence [Recovered/Resolved]
  - Panic attack [Recovered/Resolved]
  - Insomnia [Recovered/Resolved]
  - Abdominal pain [Recovered/Resolved]
  - Hypoaesthesia [Recovered/Resolved]
  - Depressed mood [Recovered/Resolved]
  - Diarrhoea [Unknown]
  - Anal haemorrhage [Recovered/Resolved]
  - Eye swelling [Recovered/Resolved]
  - Irritability [Recovered/Resolved]
  - Tinnitus [Recovered/Resolved]

NARRATIVE: CASE EVENT DATE: 201212
